FAERS Safety Report 10158376 (Version 1)
Quarter: 2014Q2

REPORT INFORMATION
  Report Type: Spontaneous
  Country: US (occurrence: US)
  Receive Date: 20140507
  Receipt Date: 20140507
  Transmission Date: 20141212
  Serious: No
  Sender: FDA-Public Use
  Company Number: US-009507513-1405USA000232

PATIENT
  Sex: Female

DRUGS (1)
  1. ZIOPTAN [Suspect]
     Dosage: UNK
     Route: 047

REACTIONS (1)
  - Vision blurred [Unknown]
